FAERS Safety Report 24294226 (Version 2)
Quarter: 2025Q3

REPORT INFORMATION
  Report Type: Spontaneous
  Country: US (occurrence: US)
  Receive Date: 20240906
  Receipt Date: 20250905
  Transmission Date: 20251021
  Serious: No
  Sender: DOMPE FARMACEUTICI
  Company Number: US-FARMAPROD-202406-2148

PATIENT
  Sex: Female
  Weight: 44.0 kg

DRUGS (20)
  1. OXERVATE [Suspect]
     Active Substance: CENEGERMIN-BKBJ
     Indication: Neurotrophic keratopathy
     Route: 047
     Dates: start: 20240514
  2. OXERVATE [Suspect]
     Active Substance: CENEGERMIN-BKBJ
     Indication: Ulcerative keratitis
  3. IVIZIA [Concomitant]
     Active Substance: POVIDONE
  4. REFRESH PLUS [Concomitant]
     Active Substance: CARBOXYMETHYLCELLULOSE SODIUM
  5. TYRVAYA [Concomitant]
     Active Substance: VARENICLINE TARTRATE
  6. FLAXSEED [Concomitant]
     Active Substance: FLAX SEED
  7. DUREZOL [Concomitant]
     Active Substance: DIFLUPREDNATE
  8. PROLENSA [Concomitant]
     Active Substance: BROMFENAC SODIUM
  9. MIEBO [Concomitant]
     Active Substance: PERFLUOROHEXYLOCTANE
  10. ALPHAGAN P [Concomitant]
     Active Substance: BRIMONIDINE TARTRATE
  11. CARTEOLOL HYDROCHLORIDE [Concomitant]
     Active Substance: CARTEOLOL HYDROCHLORIDE
  12. CEQUA [Concomitant]
     Active Substance: CYCLOSPORINE
  13. LOTEPREDNOL ETABONATE [Concomitant]
     Active Substance: LOTEPREDNOL ETABONATE
  14. ERYTHROMYCIN [Concomitant]
     Active Substance: ERYTHROMYCIN
  15. ACETAMINOPHEN\OXYCODONE HYDROCHLORIDE [Concomitant]
     Active Substance: ACETAMINOPHEN\OXYCODONE HYDROCHLORIDE
  16. PROPRANOLOL HYDROCHLORIDE [Concomitant]
     Active Substance: PROPRANOLOL HYDROCHLORIDE
  17. ALPRAZOLAM [Concomitant]
     Active Substance: ALPRAZOLAM
  18. SPIRONOLACTONE [Concomitant]
     Active Substance: SPIRONOLACTONE
  19. MOXIFLOXACIN [Concomitant]
     Active Substance: MOXIFLOXACIN
  20. SYNTHROID [Concomitant]
     Active Substance: LEVOTHYROXINE SODIUM

REACTIONS (6)
  - Oropharyngeal pain [Unknown]
  - Nasal dryness [Unknown]
  - Swelling of eyelid [Unknown]
  - Eye irritation [Unknown]
  - Drug ineffective [Unknown]
  - Condition aggravated [Unknown]
